FAERS Safety Report 10578429 (Version 1)
Quarter: 2014Q4

REPORT INFORMATION
  Report Type: Spontaneous
  Country: GB (occurrence: GB)
  Receive Date: 20141112
  Receipt Date: 20141112
  Transmission Date: 20150529
  Serious: Yes (Other)
  Sender: FDA-Public Use
  Company Number: GB-BAYER-2014-165321

PATIENT
  Age: 56 Year
  Sex: Female

DRUGS (1)
  1. BETAFERON [Suspect]
     Active Substance: INTERFERON BETA-1B
     Dosage: UNK
     Dates: start: 199603, end: 201401

REACTIONS (7)
  - Polyarteritis nodosa [None]
  - Mastectomy [None]
  - Mastectomy [None]
  - Necrotising fasciitis [None]
  - Cutaneous vasculitis [None]
  - Arm amputation [None]
  - Bladder catheter permanent [None]

NARRATIVE: CASE EVENT DATE: 2000
